FAERS Safety Report 11912046 (Version 1)
Quarter: 2016Q1

REPORT INFORMATION
  Report Type: Spontaneous
  Country: IN (occurrence: IN)
  Receive Date: 20160112
  Receipt Date: 20160112
  Transmission Date: 20160526
  Serious: Yes (Life-Threatening, Hospitalization)
  Sender: FDA-Public Use
  Company Number: IN-MYLANLABS-2016M1001120

PATIENT

DRUGS (2)
  1. BACLOFEN. [Suspect]
     Active Substance: BACLOFEN
     Indication: ALCOHOLISM
     Dosage: 40MG/DAY
     Route: 065
  2. BACLOFEN. [Suspect]
     Active Substance: BACLOFEN
     Indication: OFF LABEL USE
     Dosage: FOUR STRIPS OF BACLOFEN 10 MG, AMOUNTING TO 400 MG
     Route: 048

REACTIONS (4)
  - Coma [Recovered/Resolved]
  - Intentional overdose [Recovering/Resolving]
  - Respiratory depression [Recovering/Resolving]
  - Off label use [Recovering/Resolving]
